FAERS Safety Report 14161312 (Version 1)
Quarter: 2017Q4

REPORT INFORMATION
  Report Type: Spontaneous
  Country: US (occurrence: None)
  Receive Date: 20171106
  Receipt Date: 20171106
  Transmission Date: 20180321
  Serious: Yes (Hospitalization, Other)
  Sender: FDA-Public Use
  Company Number: None

PATIENT
  Age: 26 Year
  Sex: Female

DRUGS (1)
  1. LILETTA [Suspect]
     Active Substance: LEVONORGESTREL
     Dates: start: 20170106, end: 20171023

REACTIONS (7)
  - Haemorrhage [None]
  - Infection [None]
  - Abortion spontaneous [None]
  - Pregnancy with contraceptive device [None]
  - Necrotising soft tissue infection [None]
  - Device expulsion [None]
  - Device failure [None]

NARRATIVE: CASE EVENT DATE: 20171023
